FAERS Safety Report 22066543 (Version 1)
Quarter: 2023Q1

REPORT INFORMATION
  Report Type: Spontaneous
  Country: US (occurrence: None)
  Receive Date: 20230306
  Receipt Date: 20230306
  Transmission Date: 20230418
  Serious: No
  Sender: FDA-Public Use
  Company Number: 2023A044993

PATIENT
  Age: 39 Year
  Sex: Female
  Weight: 104.3 kg

DRUGS (6)
  1. BUDESONIDE\FORMOTEROL\GLYCOPYRRONIUM [Suspect]
     Active Substance: BUDESONIDE\FORMOTEROL\GLYCOPYRRONIUM
     Indication: Chronic obstructive pulmonary disease
     Route: 055
  2. BUDESONIDE\FORMOTEROL\GLYCOPYRRONIUM [Suspect]
     Active Substance: BUDESONIDE\FORMOTEROL\GLYCOPYRRONIUM
     Indication: Chronic obstructive pulmonary disease
     Route: 055
  3. SYMBICORT [Suspect]
     Active Substance: BUDESONIDE\FORMOTEROL FUMARATE DIHYDRATE
     Dosage: UNKNOWN
     Route: 055
  4. OXYGEN [Concomitant]
     Active Substance: OXYGEN
     Dosage: 2-3 LITERS UNKNOWN
  5. UNSPECIFIED INGREDIENT [Concomitant]
     Active Substance: UNSPECIFIED INGREDIENT
     Dosage: 80.0MG UNKNOWN
  6. ALBUTEROL [Concomitant]
     Active Substance: ALBUTEROL
     Dosage: UNKNOWN

REACTIONS (4)
  - Dyspnoea [Unknown]
  - Product dose omission issue [Unknown]
  - Intentional product misuse [Unknown]
  - Device malfunction [Unknown]

NARRATIVE: CASE EVENT DATE: 20230219
